FAERS Safety Report 11147440 (Version 6)
Quarter: 2016Q3

REPORT INFORMATION
  Report Type: Report from Study
  Country: MX (occurrence: MX)
  Receive Date: 20150529
  Receipt Date: 20160708
  Transmission Date: 20161109
  Serious: Yes (Disabling)
  Sender: FDA-Public Use
  Company Number: MX-ROCHE-1583789

PATIENT
  Sex: Female
  Weight: 64.5 kg

DRUGS (4)
  1. KETOROLACO [Concomitant]
     Indication: RHEUMATOID ARTHRITIS
     Route: 058
  2. ROACTEMRA [Suspect]
     Active Substance: TOCILIZUMAB
     Indication: RHEUMATOID ARTHRITIS
     Dosage: LAST DOSE 01/APR/2015
     Route: 042
     Dates: start: 201312
  3. METHOTREXATE. [Concomitant]
     Active Substance: METHOTREXATE
     Indication: RHEUMATOID ARTHRITIS
     Dosage: 4 TABLETS ON SATURDAY
     Route: 048
  4. ROACTEMRA [Suspect]
     Active Substance: TOCILIZUMAB
     Dosage: IN MARCH AND APRIL.
     Route: 042

REACTIONS (20)
  - Fatigue [Not Recovered/Not Resolved]
  - Movement disorder [Not Recovered/Not Resolved]
  - Pain [Not Recovered/Not Resolved]
  - Rheumatoid factor increased [Not Recovered/Not Resolved]
  - Hypoaesthesia [Not Recovered/Not Resolved]
  - Peripheral swelling [Unknown]
  - Insomnia [Unknown]
  - Arthritis [Unknown]
  - Swelling [Not Recovered/Not Resolved]
  - Inflammation [Not Recovered/Not Resolved]
  - Joint swelling [Not Recovered/Not Resolved]
  - Gait disturbance [Not Recovered/Not Resolved]
  - Bone disorder [Not Recovered/Not Resolved]
  - Oropharyngeal pain [Recovering/Resolving]
  - Arthropathy [Not Recovered/Not Resolved]
  - Immunodeficiency [Unknown]
  - Cartilage atrophy [Not Recovered/Not Resolved]
  - Weight increased [Not Recovered/Not Resolved]
  - Drug dose omission [Unknown]
  - Intentional product misuse [Unknown]

NARRATIVE: CASE EVENT DATE: 2014
